FAERS Safety Report 6424327-7 (Version None)
Quarter: 2009Q4

REPORT INFORMATION
  Report Type: 
  Country: None (occurrence: None)
  Receive Date: 20091103
  Receipt Date: 20091022
  Transmission Date: 20100525
  Serious: Yes (Other)
  Sender: FDA-Public Use
  Company Number: FR-BIOGENIDEC-2009BI005678

PATIENT
  Age: 55 Year
  Sex: Male

DRUGS (7)
  1. TYSABRI [Suspect]
     Indication: MULTIPLE SCLEROSIS
     Route: 042
     Dates: start: 20080605, end: 20081211
  2. ANTIHYPERTENSIVES [Concomitant]
  3. ANTIMUSCARINIC BLADDER SPECIFIC AGENTS [Concomitant]
  4. LEVOTHYROXINE SODIUM [Concomitant]
     Route: 048
  5. TAMSULOSIN HCL [Concomitant]
     Route: 048
  6. TENSTATEN [Concomitant]
     Indication: HYPERTENSION
  7. OMACOR [Concomitant]
     Indication: ISCHAEMIA

REACTIONS (1)
  - RECTAL CANCER [None]
